FAERS Safety Report 18302109 (Version 1)
Quarter: 2020Q3

REPORT INFORMATION
  Report Type: Spontaneous
  Country: US (occurrence: US)
  Receive Date: 20200923
  Receipt Date: 20200923
  Transmission Date: 20201103
  Serious: No
  Sender: FDA-Public Use
  Company Number: US-ASTRAZENECA-2020SF08880

PATIENT
  Sex: Female
  Weight: 104.3 kg

DRUGS (3)
  1. FASENRA [Suspect]
     Active Substance: BENRALIZUMAB
     Indication: ASTHMA
     Route: 058
     Dates: start: 202006
  2. OXYGEN. [Concomitant]
     Active Substance: OXYGEN
     Indication: PULMONARY HYPERTENSION
  3. CORTISONE [Concomitant]
     Active Substance: CORTISONE

REACTIONS (6)
  - Mouth swelling [Unknown]
  - Muscle spasms [Unknown]
  - Symptom recurrence [Unknown]
  - Sleep disorder due to general medical condition, insomnia type [Unknown]
  - Lip swelling [Unknown]
  - Osteoarthritis [Unknown]
